FAERS Safety Report 10663020 (Version 4)
Quarter: 2015Q2

REPORT INFORMATION
  Report Type: Spontaneous
  Country: US (occurrence: US)
  Receive Date: 20141218
  Receipt Date: 20150605
  Transmission Date: 20150821
  Serious: Yes (Hospitalization, Disabling)
  Sender: FDA-Public Use
  Company Number: US-009507513-1201USA03321

PATIENT
  Sex: Male
  Weight: 86.17 kg

DRUGS (1)
  1. PROPECIA [Suspect]
     Active Substance: FINASTERIDE
     Indication: ALOPECIA
     Dosage: 1 MG, QD
     Route: 048
     Dates: start: 200206

REACTIONS (39)
  - Testicular atrophy [Unknown]
  - Sexual dysfunction [Not Recovered/Not Resolved]
  - Poor quality sleep [Unknown]
  - Adverse event [Unknown]
  - Temporomandibular joint syndrome [Unknown]
  - Dyspnoea [Unknown]
  - Neoplasm [Unknown]
  - Seasonal allergy [Unknown]
  - Product use issue [Unknown]
  - Lung disorder [Not Recovered/Not Resolved]
  - Hypertension [Unknown]
  - Glossitis [Unknown]
  - Loss of libido [Unknown]
  - Pneumonia [Unknown]
  - Palpitations [Unknown]
  - Restless legs syndrome [Unknown]
  - Irritable bowel syndrome [Unknown]
  - Renal necrosis [Unknown]
  - Hypersomnia [Unknown]
  - Cognitive disorder [Not Recovered/Not Resolved]
  - Asthenia [Unknown]
  - Hypogonadism [Unknown]
  - Oral herpes [Unknown]
  - Dizziness [Unknown]
  - Chest discomfort [Unknown]
  - Peripheral swelling [Unknown]
  - Asthenia [Unknown]
  - Diverticulum [Unknown]
  - Erectile dysfunction [Unknown]
  - Hyperhidrosis [Unknown]
  - Chronic obstructive pulmonary disease [Unknown]
  - Headache [Unknown]
  - Infertility male [Unknown]
  - Nasal congestion [Unknown]
  - Myalgia [Unknown]
  - Gastrointestinal haemorrhage [Unknown]
  - Asthma [Unknown]
  - Gastrointestinal ulcer [Unknown]
  - Vision blurred [Unknown]

NARRATIVE: CASE EVENT DATE: 2003
